FAERS Safety Report 20610182 (Version 1)
Quarter: 2022Q1

REPORT INFORMATION
  Report Type: Spontaneous
  Country: FR (occurrence: FR)
  Receive Date: 20220318
  Receipt Date: 20220318
  Transmission Date: 20220423
  Serious: Yes (Congenital Anomaly, Other)
  Sender: FDA-Public Use
  Company Number: FR-ABBVIE-22K-056-4321556-00

PATIENT
  Sex: Male
  Weight: 3.22 kg

DRUGS (3)
  1. VALPROATE SODIUM [Suspect]
     Active Substance: VALPROATE SODIUM
     Indication: Maternal exposure timing unspecified
     Route: 064
     Dates: start: 20020521, end: 20021029
  2. VALPROATE SODIUM [Suspect]
     Active Substance: VALPROATE SODIUM
     Route: 064
     Dates: start: 20021029, end: 20030208
  3. FOLIC ACID [Concomitant]
     Active Substance: FOLIC ACID
     Indication: Product used for unknown indication

REACTIONS (27)
  - Plagiocephaly [Unknown]
  - Foetal anticonvulsant syndrome [Unknown]
  - Cryptorchism [Unknown]
  - Dysmorphism [Unknown]
  - Pectus excavatum [Unknown]
  - Hypotonia [Unknown]
  - Disturbance in attention [Unknown]
  - Kyphosis [Unknown]
  - Knee deformity [Unknown]
  - Learning disorder [Unknown]
  - Behaviour disorder [Unknown]
  - Sleep disorder [Unknown]
  - Speech disorder developmental [Unknown]
  - Psychomotor skills impaired [Unknown]
  - Foot deformity [Unknown]
  - Developmental delay [Unknown]
  - Scoliosis [Unknown]
  - Disturbance in social behaviour [Unknown]
  - Joint laxity [Unknown]
  - Autism spectrum disorder [Unknown]
  - Ear, nose and throat disorder [Unknown]
  - Ear, nose and throat disorder [Unknown]
  - Ear, nose and throat disorder [Unknown]
  - Gastrooesophageal reflux disease [Unknown]
  - Anxiety [Unknown]
  - Fatigue [Unknown]
  - Foetal exposure during pregnancy [Unknown]
